FAERS Safety Report 8237383-0 (Version None)
Quarter: 2012Q1

REPORT INFORMATION
  Report Type: 
  Country: None (occurrence: None)
  Receive Date: 20120327
  Receipt Date: 20120319
  Transmission Date: 20120608
  Serious: Yes (Hospitalization)
  Sender: FDA-Public Use
  Company Number: US-BAYER-2011-092367

PATIENT
  Age: 17 Year
  Sex: Female
  Weight: 103 kg

DRUGS (2)
  1. YAZ [Suspect]
     Indication: CONTRACEPTION
     Dosage: UNK
     Route: 048
     Dates: start: 20080408, end: 20090905
  2. YAZ [Suspect]
     Indication: MENSTRUATION IRREGULAR

REACTIONS (2)
  - PULMONARY EMBOLISM [None]
  - PULMONARY INFARCTION [None]
